FAERS Safety Report 14171076 (Version 11)
Quarter: 2019Q2

REPORT INFORMATION
  Report Type: Report from Study
  Country: None (occurrence: JP)
  Receive Date: 20171108
  Receipt Date: 20190627
  Transmission Date: 20190711
  Serious: Yes (Death, Hospitalization)
  Sender: FDA-Public Use
  Company Number: JP-ABBVIE-17K-087-2156915-00

PATIENT
  Age: 73 Year
  Sex: Male
  Weight: 46 kg

DRUGS (4)
  1. DUODOPA [Suspect]
     Active Substance: CARBIDOPA\LEVODOPA
     Indication: PARKINSON^S DISEASE
     Dosage: MD: 8.3 ML, CD: 2.5 ML/HR X 16 HR
     Route: 050
     Dates: start: 20171101, end: 20171104
  2. LEVODOPA [Concomitant]
     Active Substance: LEVODOPA
     Indication: PARKINSON^S DISEASE
     Route: 041
     Dates: start: 20171104, end: 20171203
  3. ROTIGOTINE [Concomitant]
     Active Substance: ROTIGOTINE
     Indication: PARKINSON^S DISEASE
     Route: 062
  4. DUODOPA [Suspect]
     Active Substance: CARBIDOPA\LEVODOPA
     Dosage: MD: 8.3 ML, CD: 2.5 ML/HR X 16 HR
     Route: 050
     Dates: start: 20171204, end: 20180220

REACTIONS (9)
  - Parkinson^s disease [Fatal]
  - Dysphagia [Fatal]
  - Pneumonia aspiration [Recovering/Resolving]
  - Wrong technique in device usage process [Unknown]
  - Device leakage [Recovered/Resolved]
  - Pneumonia aspiration [Fatal]
  - Device dislocation [Unknown]
  - Ileus paralytic [Recovered/Resolved]
  - Unintentional medical device removal [Unknown]

NARRATIVE: CASE EVENT DATE: 2017
